FAERS Safety Report 12683921 (Version 4)
Quarter: 2017Q4

REPORT INFORMATION
  Report Type: Report from Study
  Country: JP (occurrence: JP)
  Receive Date: 20160825
  Receipt Date: 20171113
  Transmission Date: 20180320
  Serious: Yes (Other)
  Sender: FDA-Public Use
  Company Number: JP-SA-2016SA135577

PATIENT
  Sex: Male

DRUGS (5)
  1. MABCAMPATH [Suspect]
     Active Substance: ALEMTUZUMAB
     Indication: ACUTE LYMPHOCYTIC LEUKAEMIA
     Route: 042
     Dates: start: 20160722, end: 20160722
  2. MABCAMPATH [Suspect]
     Active Substance: ALEMTUZUMAB
     Indication: ACUTE LYMPHOCYTIC LEUKAEMIA
     Route: 042
     Dates: start: 20160721, end: 20160721
  3. MABCAMPATH [Suspect]
     Active Substance: ALEMTUZUMAB
     Indication: ACUTE LYMPHOCYTIC LEUKAEMIA
     Route: 042
     Dates: start: 20160719, end: 20160719
  4. MABCAMPATH [Suspect]
     Active Substance: ALEMTUZUMAB
     Indication: ACUTE LYMPHOCYTIC LEUKAEMIA
     Route: 042
     Dates: start: 20160829, end: 20160829
  5. MABCAMPATH [Suspect]
     Active Substance: ALEMTUZUMAB
     Indication: ACUTE LYMPHOCYTIC LEUKAEMIA
     Route: 042
     Dates: start: 20160805, end: 20160805

REACTIONS (6)
  - Pancytopenia [Recovered/Resolved]
  - Cytomegalovirus infection [Not Recovered/Not Resolved]
  - Pneumothorax [Recovering/Resolving]
  - Platelet count decreased [Not Recovered/Not Resolved]
  - Pyrexia [Recovered/Resolved]
  - Infusion related reaction [Recovered/Resolved]

NARRATIVE: CASE EVENT DATE: 20160725
